FAERS Safety Report 10011627 (Version 2)
Quarter: 2014Q1

REPORT INFORMATION
  Report Type: Spontaneous
  Country: CN (occurrence: CN)
  Receive Date: 20140314
  Receipt Date: 20140314
  Transmission Date: 20141002
  Serious: Yes (Other)
  Sender: FDA-Public Use
  Company Number: CN-BAYER-2013-110025

PATIENT
  Sex: Female

DRUGS (1)
  1. CANESTEN (KAINITING) [Suspect]
     Indication: VAGINAL INFECTION
     Dosage: 0.5 UNK, UNK
     Route: 067
     Dates: start: 2013

REACTIONS (2)
  - Maternal exposure during pregnancy [None]
  - Caesarean section [None]
